FAERS Safety Report 8431558-3 (Version None)
Quarter: 2012Q2

REPORT INFORMATION
  Report Type: 
  Country: None (occurrence: None)
  Receive Date: 20120613
  Receipt Date: 20120604
  Transmission Date: 20120825
  Serious: Yes (Hospitalization, Other)
  Sender: FDA-Public Use
  Company Number: JP-VERTEX PHARMACEUTICALS INC.-AE-2012-005685

PATIENT
  Age: 57 Year
  Sex: Male

DRUGS (14)
  1. TELAVIC (TELAPREVIR) [Suspect]
     Indication: HEPATITIS C
     Route: 048
     Dates: start: 20120301, end: 20120404
  2. MOHRUS TAPE L [Concomitant]
     Route: 061
     Dates: start: 20120419, end: 20120509
  3. RIBAVIRIN [Concomitant]
     Indication: HEPATITIS C
     Route: 048
     Dates: start: 20120301, end: 20120311
  4. TELAVIC (TELAPREVIR) [Suspect]
     Route: 048
     Dates: start: 20120518
  5. METFORMIN HCL [Concomitant]
     Route: 048
     Dates: start: 20120419
  6. PEGINTERFERON ALFA-2B [Concomitant]
     Indication: HEPATITIS C
     Route: 051
     Dates: start: 20120301, end: 20120425
  7. MAGMITT [Concomitant]
     Route: 048
     Dates: start: 20120311
  8. ACETAMINOPHEN [Concomitant]
     Route: 048
     Dates: start: 20120419, end: 20120502
  9. NABOAL [Concomitant]
     Route: 051
     Dates: start: 20120515
  10. TELAVIC (TELAPREVIR) [Suspect]
     Route: 048
     Dates: start: 20120405, end: 20120510
  11. PEGINTERFERON ALFA-2B [Concomitant]
     Route: 051
     Dates: start: 20120426
  12. ETODOLAC [Concomitant]
     Route: 048
     Dates: start: 20120419, end: 20120525
  13. RIBAVIRIN [Concomitant]
     Route: 048
     Dates: start: 20120312
  14. TELAVIC (TELAPREVIR) [Suspect]
     Route: 048
     Dates: start: 20120511, end: 20120517

REACTIONS (3)
  - ERYTHEMA MULTIFORME [None]
  - LOSS OF CONSCIOUSNESS [None]
  - HAEMOGLOBIN DECREASED [None]
